FAERS Safety Report 24535665 (Version 1)
Quarter: 2024Q4

REPORT INFORMATION
  Report Type: Spontaneous
  Country: US (occurrence: US)
  Receive Date: 20241022
  Receipt Date: 20241022
  Transmission Date: 20250114
  Serious: No
  Sender: PFIZER
  Company Number: US-PFIZER INC-202400280738

PATIENT
  Age: 78 Year
  Sex: Female

DRUGS (1)
  1. IBRANCE [Suspect]
     Active Substance: PALBOCICLIB
     Dosage: 1 CAPSULE BY MOUTH DAILY FOR 21 DAYS ON AND 7 DAYS OFF FOR A 28 DAY CYCLE
     Route: 048
     Dates: end: 202409

REACTIONS (2)
  - Neoplasm progression [Unknown]
  - Diarrhoea [Unknown]
